FAERS Safety Report 6670282-4 (Version None)
Quarter: 2010Q2

REPORT INFORMATION
  Report Type: 
  Country: None (occurrence: None)
  Receive Date: 20100405
  Receipt Date: 20091111
  Transmission Date: 20101027
  Serious: Yes (Congenital Anomaly)
  Sender: FDA-Public Use
  Company Number: LEO-2010-00197

PATIENT
  Sex: Male
  Weight: 3.26 kg

DRUGS (10)
  1. INNOHEP [Suspect]
     Dosage: TRANSPLACENTAL
     Route: 064
     Dates: start: 20020821
  2. STEMETIL (PROCHLORPERAZINE) [Concomitant]
  3. CYCLIZINE (CYCLIZINE) [Concomitant]
  4. FE SO4 (IRON) [Concomitant]
  5. MEPTID (MEPTAZINOL) [Concomitant]
  6. PHENERGAN (PROMETHAZINE) [Concomitant]
  7. SYTNOCINON (OXYTOCIN) [Concomitant]
  8. CIMETIDINE [Concomitant]
  9. SODIUM CITRATE [Concomitant]
  10. BUPIVACAIN WITH FENTANYL (BUPIVACAINE HYDROCHLORIDE) [Concomitant]

REACTIONS (3)
  - BIRTH MARK [None]
  - CAESAREAN SECTION [None]
  - MATERNAL DRUGS AFFECTING FOETUS [None]
